FAERS Safety Report 4534391-8 (Version None)
Quarter: 2004Q4

REPORT INFORMATION
  Report Type: 
  Country: None (occurrence: None)
  Receive Date: 20041214
  Receipt Date: 20041007
  Transmission Date: 20050328
  Serious: Yes (Hospitalization)
  Sender: FDA-Public Use
  Company Number: 2004237753US

PATIENT
  Age: 72 Year
  Sex: Female
  Weight: 72.6 kg

DRUGS (3)
  1. BEXTRA [Suspect]
     Indication: ARTHRALGIA
     Dosage: 10 MG, QD, ORAL
     Route: 048
     Dates: start: 20040930, end: 20040101
  2. SYNTHROID [Concomitant]
  3. ZOCOR [Concomitant]

REACTIONS (4)
  - CHEST PAIN [None]
  - HEADACHE [None]
  - NAUSEA [None]
  - SYNCOPE [None]
